FAERS Safety Report 8666332 (Version 2)
Quarter: 2012Q4

REPORT INFORMATION
  Report Type: 
  Country: CA (occurrence: CA)
  Receive Date: 20120716
  Receipt Date: 20120911
  Transmission Date: 20130627
  Serious: Yes (Hospitalization)
  Sender: FDA-Public Use
  Company Number: CA-GILEAD-2012-0057850

PATIENT
  Age: 57 Year
  Sex: Male

DRUGS (1)
  1. VIREAD [Suspect]
     Indication: HEPATITIS B
     Dosage: 300 mg, QD
     Route: 048
     Dates: start: 201201

REACTIONS (1)
  - Liver operation [Unknown]
